FAERS Safety Report 23301426 (Version 1)
Quarter: 2023Q4

REPORT INFORMATION
  Report Type: Spontaneous
  Country: US (occurrence: US)
  Receive Date: 20231215
  Receipt Date: 20231215
  Transmission Date: 20240110
  Serious: No
  Sender: FDA-Public Use
  Company Number: US-JNJFOC-20231208879

PATIENT
  Sex: Female

DRUGS (1)
  1. TYLENOL 8HR [Suspect]
     Active Substance: ACETAMINOPHEN
     Indication: Procedural pain
     Dosage: 1 PILL IN THE MORNING AND 1 AT NIGHT.
     Route: 048

REACTIONS (2)
  - Incorrect dose administered [Unknown]
  - Inappropriate schedule of product administration [Unknown]
